FAERS Safety Report 26120895 (Version 1)
Quarter: 2025Q4

REPORT INFORMATION
  Report Type: Report from Study
  Country: US (occurrence: US)
  Receive Date: 20251204
  Receipt Date: 20251204
  Transmission Date: 20260118
  Serious: Yes (Other)
  Sender: MYLAN
  Company Number: US-MYLANLABS-2025M1102850

PATIENT
  Age: 57 Year
  Sex: Female

DRUGS (28)
  1. TRETINOIN [Suspect]
     Active Substance: TRETINOIN
     Indication: Acute promyelocytic leukaemia
     Dosage: UNK (AS A PART OF INDUCTION THERAPY)
  2. TRETINOIN [Suspect]
     Active Substance: TRETINOIN
     Dosage: UNK (AS A PART OF INDUCTION THERAPY)
  3. TRETINOIN [Suspect]
     Active Substance: TRETINOIN
     Dosage: UNK (AS A PART OF INDUCTION THERAPY)
     Route: 065
  4. TRETINOIN [Suspect]
     Active Substance: TRETINOIN
     Dosage: UNK (AS A PART OF INDUCTION THERAPY)
     Route: 065
  5. TRETINOIN [Suspect]
     Active Substance: TRETINOIN
     Dosage: UNK (AS A PART OF CONSOLIDATION THERAPY)
  6. TRETINOIN [Suspect]
     Active Substance: TRETINOIN
     Dosage: UNK (AS A PART OF CONSOLIDATION THERAPY)
  7. TRETINOIN [Suspect]
     Active Substance: TRETINOIN
     Dosage: UNK (AS A PART OF CONSOLIDATION THERAPY)
     Route: 065
  8. TRETINOIN [Suspect]
     Active Substance: TRETINOIN
     Dosage: UNK (AS A PART OF CONSOLIDATION THERAPY)
     Route: 065
  9. TRETINOIN [Suspect]
     Active Substance: TRETINOIN
     Dosage: UNK (AS A PART OF MAINTENANCE THERAPY)
  10. TRETINOIN [Suspect]
     Active Substance: TRETINOIN
     Dosage: UNK (AS A PART OF MAINTENANCE THERAPY)
     Route: 065
  11. TRETINOIN [Suspect]
     Active Substance: TRETINOIN
     Dosage: UNK (AS A PART OF MAINTENANCE THERAPY)
  12. TRETINOIN [Suspect]
     Active Substance: TRETINOIN
     Dosage: UNK (AS A PART OF MAINTENANCE THERAPY)
     Route: 065
  13. MERCAPTOPURINE [Suspect]
     Active Substance: MERCAPTOPURINE
     Indication: Acute promyelocytic leukaemia
     Dosage: UNK (AS A PART OF MAINTENANCE THERAPY)
  14. MERCAPTOPURINE [Suspect]
     Active Substance: MERCAPTOPURINE
     Dosage: UNK (AS A PART OF MAINTENANCE THERAPY)
     Route: 065
  15. MERCAPTOPURINE [Suspect]
     Active Substance: MERCAPTOPURINE
     Dosage: UNK (AS A PART OF MAINTENANCE THERAPY)
     Route: 065
  16. MERCAPTOPURINE [Suspect]
     Active Substance: MERCAPTOPURINE
     Dosage: UNK (AS A PART OF MAINTENANCE THERAPY)
  17. METHOTREXATE [Suspect]
     Active Substance: METHOTREXATE
     Indication: Acute promyelocytic leukaemia
     Dosage: UNK (AS A PART OF MAINTENANCE THERAPY)
  18. METHOTREXATE [Suspect]
     Active Substance: METHOTREXATE
     Dosage: UNK (AS A PART OF MAINTENANCE THERAPY)
     Route: 065
  19. METHOTREXATE [Suspect]
     Active Substance: METHOTREXATE
     Dosage: UNK (AS A PART OF MAINTENANCE THERAPY)
     Route: 065
  20. METHOTREXATE [Suspect]
     Active Substance: METHOTREXATE
     Dosage: UNK (AS A PART OF MAINTENANCE THERAPY)
  21. IDARUBICIN [Suspect]
     Active Substance: IDARUBICIN
     Indication: Acute promyelocytic leukaemia
     Dosage: UNK (AS A PART OF INDUCTION THERAPY)
  22. IDARUBICIN [Suspect]
     Active Substance: IDARUBICIN
     Dosage: UNK (AS A PART OF INDUCTION THERAPY)
  23. IDARUBICIN [Suspect]
     Active Substance: IDARUBICIN
     Dosage: UNK (AS A PART OF INDUCTION THERAPY)
     Route: 065
  24. IDARUBICIN [Suspect]
     Active Substance: IDARUBICIN
     Dosage: UNK (AS A PART OF INDUCTION THERAPY)
     Route: 065
  25. IDARUBICIN [Suspect]
     Active Substance: IDARUBICIN
     Dosage: UNK (AS A PART OF CONSOLIDATION THERAPY)
  26. IDARUBICIN [Suspect]
     Active Substance: IDARUBICIN
     Dosage: UNK (AS A PART OF CONSOLIDATION THERAPY)
  27. IDARUBICIN [Suspect]
     Active Substance: IDARUBICIN
     Dosage: UNK (AS A PART OF CONSOLIDATION THERAPY)
     Route: 065
  28. IDARUBICIN [Suspect]
     Active Substance: IDARUBICIN
     Dosage: UNK (AS A PART OF CONSOLIDATION THERAPY)
     Route: 065

REACTIONS (2)
  - Myelodysplastic syndrome with excess blasts [Recovering/Resolving]
  - Product prescribing issue [Unknown]
